FAERS Safety Report 7617393-4 (Version None)
Quarter: 2011Q3

REPORT INFORMATION
  Report Type: 
  Country: None (occurrence: None)
  Receive Date: 20110718
  Receipt Date: 20110712
  Transmission Date: 20111222
  Serious: Yes (Other)
  Sender: FDA-Public Use
  Company Number: US-PFIZER INC-2011157593

PATIENT
  Sex: Male
  Weight: 81 kg

DRUGS (7)
  1. BENICAR HCT [Concomitant]
     Dosage: UNK
  2. NORVASC [Suspect]
     Indication: CEREBROVASCULAR ACCIDENT
     Dosage: 5 MG, 1X/DAY
     Route: 048
     Dates: start: 20100701
  3. PRAVASTATIN [Concomitant]
     Dosage: 200 MG, UNK
  4. NORVASC [Suspect]
     Indication: CARDIAC DISORDER
  5. HYDROCHLOROTHIAZIDE [Concomitant]
     Dosage: 25 MG, UNK
  6. PLAVIX [Concomitant]
     Dosage: 75 MG, UNK
  7. ACETYLSALICYLIC ACID [Concomitant]
     Dosage: 325 MG, UNK

REACTIONS (2)
  - HYPERTENSION [None]
  - CEREBROVASCULAR ACCIDENT [None]
